FAERS Safety Report 7325368-8 (Version None)
Quarter: 2011Q1

REPORT INFORMATION
  Report Type: 
  Country: None (occurrence: None)
  Receive Date: 20110218
  Receipt Date: 20110210
  Transmission Date: 20110831
  Serious: Yes (Death, Other)
  Sender: FDA-Public Use
  Company Number: LEO-2010-00469

PATIENT
  Age: 65 Year
  Sex: Male

DRUGS (7)
  1. PREDNISONE TAB [Concomitant]
  2. INNOHEP [Suspect]
     Indication: PRODUCT USED FOR UNKNOWN INDICATION
     Dosage: SUBCUTANEOUS
     Route: 058
  3. REVLIMID [Suspect]
     Indication: PRODUCT USED FOR UNKNOWN INDICATION
     Dosage: 12.5 MG (25 MG, 1 IN 32 D), ORAL
     Route: 048
  4. RABEPRAZOLE (RABEPRAZOLE) [Concomitant]
  5. GLYBURIDE [Concomitant]
  6. METFORMIN (METFORMIN) (TABLETS) [Concomitant]
  7. SEPTRA (SULFAMETHOXAZOLE, TRIMETHOPRIM) (TABLETS) [Concomitant]

REACTIONS (8)
  - INTESTINAL DILATATION [None]
  - GASTROINTESTINAL OEDEMA [None]
  - DEHYDRATION [None]
  - DIARRHOEA [None]
  - RENAL FAILURE [None]
  - HYPOTENSION [None]
  - ABDOMINAL DISTENSION [None]
  - CARDIAC ARREST [None]
